FAERS Safety Report 8615521-5 (Version None)
Quarter: 2012Q3

REPORT INFORMATION
  Report Type: 
  Country: None (occurrence: None)
  Receive Date: 20120823
  Receipt Date: 20090627
  Transmission Date: 20120928
  Serious: Yes (Death, Other)
  Sender: FDA-Public Use
  Company Number: CO-PFIZER INC-2012204099

PATIENT
  Age: 73 Year
  Sex: Female

DRUGS (7)
  1. GLIBENCLAMIDE [Concomitant]
     Dosage: 5 MG, 1X/DAY
  2. GLIBENCLAMIDE [Concomitant]
     Dosage: 5 MG, 3X/DAY
  3. LIPITOR [Suspect]
     Indication: DYSLIPIDAEMIA
     Dosage: 10 MG, 1X/DAY
  4. HYDROCHLOROTHIAZIDE [Concomitant]
     Dosage: 25 MG, 1X/DAY
  5. METOPROLOL TARTRATE [Concomitant]
     Dosage: 50 MG, 1X/DAY
  6. ACETYLSALICYLIC ACID [Concomitant]
     Dosage: 100 MG, 1X/DAY
  7. OLMESARTAN MEDOXOMIL AND HYDROCHLOROTHIZIDE [Suspect]
     Indication: HYPERTENSION
     Dosage: OLMESARTAN/HYDRCHLOROTHIAZIDE 20/12.5 MG, 1X/DAY

REACTIONS (5)
  - HAEMATURIA [None]
  - OBESITY [None]
  - RENAL FAILURE CHRONIC [None]
  - SUDDEN CARDIAC DEATH [None]
  - LEUKOCYTURIA [None]
